FAERS Safety Report 16782428 (Version 3)
Quarter: 2020Q2

REPORT INFORMATION
  Report Type: Spontaneous
  Country: US (occurrence: US)
  Receive Date: 20190906
  Receipt Date: 20200526
  Transmission Date: 20200713
  Serious: Yes (Hospitalization, Other)
  Sender: FDA-Public Use
  Company Number: US-ASTRAZENECA-2019SF26260

PATIENT
  Age: 15610 Day
  Sex: Female
  Weight: 149.2 kg

DRUGS (42)
  1. METFORMIN [Concomitant]
     Active Substance: METFORMIN HYDROCHLORIDE
  2. ACETAMINOPHEN-HYDROCODONE [Concomitant]
     Active Substance: ACETAMINOPHEN\HYDROCODONE
  3. DOXYCYCLINE HYCLATE. [Concomitant]
     Active Substance: DOXYCYCLINE HYCLATE
  4. RELION [Concomitant]
  5. VITAMIN D2 [Concomitant]
     Active Substance: ERGOCALCIFEROL
  6. FARXIGA [Suspect]
     Active Substance: DAPAGLIFLOZIN PROPANEDIOL
     Indication: TYPE 2 DIABETES MELLITUS
     Route: 048
     Dates: start: 20171120
  7. LISINOPRIL. [Concomitant]
     Active Substance: LISINOPRIL
  8. FARXIGA [Suspect]
     Active Substance: DAPAGLIFLOZIN PROPANEDIOL
     Indication: BLOOD PRESSURE DECREASED
     Route: 048
     Dates: start: 20171120
  9. HYDROCHLOROTHIAZIDE. [Concomitant]
     Active Substance: HYDROCHLOROTHIAZIDE
  10. VYVANSE [Concomitant]
     Active Substance: LISDEXAMFETAMINE DIMESYLATE
  11. ESTRADIOL. [Concomitant]
     Active Substance: ESTRADIOL
  12. FARXIGA [Suspect]
     Active Substance: DAPAGLIFLOZIN PROPANEDIOL
     Indication: TYPE 2 DIABETES MELLITUS
     Route: 048
     Dates: start: 20161121
  13. LANTUS [Concomitant]
     Active Substance: INSULIN GLARGINE
  14. ZOLOFT [Concomitant]
     Active Substance: SERTRALINE HYDROCHLORIDE
  15. NOVOLOG [Concomitant]
     Active Substance: INSULIN ASPART
  16. PROVENTIL [Concomitant]
     Active Substance: ALBUTEROL
  17. GABAPENTIN. [Concomitant]
     Active Substance: GABAPENTIN
  18. PERCOCET [Concomitant]
     Active Substance: ACETAMINOPHEN\OXYCODONE HYDROCHLORIDE
  19. HUMULIN NOS [Concomitant]
     Active Substance: INSULIN HUMAN
  20. EMLA [Concomitant]
     Active Substance: LIDOCAINE\PRILOCAINE
  21. ROPINIROLE. [Concomitant]
     Active Substance: ROPINIROLE
  22. OXYCODONE [Concomitant]
     Active Substance: OXYCODONE
  23. SYNTHROID [Concomitant]
     Active Substance: LEVOTHYROXINE SODIUM
  24. FLEXERIL [Concomitant]
     Active Substance: CYCLOBENZAPRINE HYDROCHLORIDE
  25. PRINZIDE [Concomitant]
     Active Substance: HYDROCHLOROTHIAZIDE\LISINOPRIL
  26. OSCAL [Concomitant]
     Active Substance: CALCIUM CARBONATE
  27. PHENTERMINE. [Concomitant]
     Active Substance: PHENTERMINE
  28. SMZ/TMP [Concomitant]
     Active Substance: SULFAMETHOXAZOLE\TRIMETHOPRIM
  29. FARXIGA [Suspect]
     Active Substance: DAPAGLIFLOZIN PROPANEDIOL
     Indication: WEIGHT DECREASED
     Route: 048
     Dates: start: 20171120
  30. FARXIGA [Suspect]
     Active Substance: DAPAGLIFLOZIN PROPANEDIOL
     Indication: WEIGHT DECREASED
     Route: 048
     Dates: start: 20161121
  31. VITAMIN D3 [Concomitant]
     Active Substance: CHOLECALCIFEROL
  32. KLONOPIN [Concomitant]
     Active Substance: CLONAZEPAM
  33. AUGMENTIN [Concomitant]
     Active Substance: AMOXICILLIN\CLAVULANATE POTASSIUM
  34. DIFLUCAN [Concomitant]
     Active Substance: FLUCONAZOLE
  35. DOXEPIN [Concomitant]
     Active Substance: DOXEPIN
  36. COREG [Concomitant]
     Active Substance: CARVEDILOL
  37. FARXIGA [Suspect]
     Active Substance: DAPAGLIFLOZIN PROPANEDIOL
     Indication: BLOOD PRESSURE DECREASED
     Route: 048
     Dates: start: 20161121
  38. XIGDUO XR [Suspect]
     Active Substance: DAPAGLIFLOZIN PROPANEDIOL\METFORMIN HYDROCHLORIDE
     Route: 048
  39. LYRICA [Concomitant]
     Active Substance: PREGABALIN
  40. ADIPEX [Concomitant]
     Active Substance: PHENTERMINE
  41. AMBIEN [Concomitant]
     Active Substance: ZOLPIDEM TARTRATE
  42. TRULICITY [Concomitant]
     Active Substance: DULAGLUTIDE

REACTIONS (8)
  - Cellulitis gangrenous [Unknown]
  - Vulval cellulitis [Unknown]
  - Perineal cellulitis [Unknown]
  - Urinary tract infection [Unknown]
  - Sepsis [Unknown]
  - Perineal abscess [Unknown]
  - Vulval abscess [Unknown]
  - Fournier^s gangrene [Unknown]

NARRATIVE: CASE EVENT DATE: 20190614
